FAERS Safety Report 11730000 (Version 2)
Quarter: 2015Q4

REPORT INFORMATION
  Report Type: Spontaneous
  Country: US (occurrence: US)
  Receive Date: 20151112
  Receipt Date: 20151223
  Transmission Date: 20160304
  Serious: Yes (Other)
  Sender: FDA-Public Use
  Company Number: US-ALLERGAN-1523384US

PATIENT
  Age: 58 Year
  Sex: Female

DRUGS (1)
  1. RESTASIS [Suspect]
     Active Substance: CYCLOSPORINE
     Indication: DRY EYE
     Dosage: UNK, UNKNOWN
     Route: 047
     Dates: start: 2014

REACTIONS (5)
  - Corneal abrasion [Recovered/Resolved]
  - Vitreous floaters [Not Recovered/Not Resolved]
  - Rotator cuff repair [Recovered/Resolved]
  - Anaphylactic shock [Recovered/Resolved]
  - Oral infection [Recovered/Resolved]
